FAERS Safety Report 6538014-8 (Version None)
Quarter: 2010Q1

REPORT INFORMATION
  Report Type: 
  Country: None (occurrence: None)
  Receive Date: 20100112
  Receipt Date: 20100112
  Transmission Date: 20100710
  Serious: Yes (Hospitalization)
  Sender: FDA-Public Use
  Company Number: None

PATIENT
  Age: 46 Year
  Sex: Male
  Weight: 215.9 kg

DRUGS (18)
  1. VANCOMYCIN [Suspect]
     Indication: CRANIOPHARYNGIOMA
     Dosage: 1.5 GRAMS Q 12 HRS IV
     Route: 042
     Dates: start: 20091229, end: 20100106
  2. VANCOMYCIN [Suspect]
     Indication: POSTOPERATIVE CARE
     Dosage: 1.5 GRAMS Q 12 HRS IV
     Route: 042
     Dates: start: 20091229, end: 20100106
  3. ACTOS [Concomitant]
  4. AMBIEN [Concomitant]
  5. BUPROPION HCL [Concomitant]
  6. CARVEDILOL [Concomitant]
  7. DESMOPRESSIN [Concomitant]
  8. DEXAMETHASONE TAB [Concomitant]
  9. DULOXETINE [Concomitant]
  10. LASIX [Concomitant]
  11. LEVOTHYROXINE SODIUM [Concomitant]
  12. LOMOTIL [Concomitant]
  13. METFORMIN HYDROCHLORIDE [Concomitant]
  14. NORCO [Concomitant]
  15. NOVOLOG [Concomitant]
  16. OMEPRAZOLE [Concomitant]
  17. PREDNISONE [Concomitant]
  18. SIMVASTATIN [Concomitant]

REACTIONS (2)
  - PRODUCT QUALITY ISSUE [None]
  - STEVENS-JOHNSON SYNDROME [None]
